FAERS Safety Report 14623328 (Version 2)
Quarter: 2018Q1

REPORT INFORMATION
  Report Type: Spontaneous
  Country: US (occurrence: US)
  Receive Date: 20180312
  Receipt Date: 20180328
  Transmission Date: 20180509
  Serious: No
  Sender: FDA-Public Use
  Company Number: US-009507513-1802USA012908

PATIENT
  Age: 21 Year
  Sex: Female
  Weight: 77.1 kg

DRUGS (1)
  1. NEXPLANON [Suspect]
     Active Substance: ETONOGESTREL
     Dosage: 3 YEAR IMPLANT INSIDE THE LEFT ARM
     Route: 059

REACTIONS (1)
  - Device dislocation [Unknown]
